FAERS Safety Report 17832062 (Version 1)
Quarter: 2020Q2

REPORT INFORMATION
  Report Type: Spontaneous
  Country: US (occurrence: US)
  Receive Date: 20200528
  Receipt Date: 20200528
  Transmission Date: 20200714
  Serious: No
  Sender: FDA-Public Use
  Company Number: US-ROCHE-2510888

PATIENT
  Sex: Male

DRUGS (2)
  1. OCREVUS [Suspect]
     Active Substance: OCRELIZUMAB
     Indication: RELAPSING-REMITTING MULTIPLE SCLEROSIS
     Route: 065
  2. OXYTOCIN. [Concomitant]
     Active Substance: OXYTOCIN
     Route: 065

REACTIONS (5)
  - Pain in extremity [Unknown]
  - Back pain [Unknown]
  - Weight increased [Unknown]
  - Musculoskeletal pain [Unknown]
  - Arthralgia [Unknown]
